FAERS Safety Report 17558429 (Version 1)
Quarter: 2020Q1

REPORT INFORMATION
  Report Type: Other
  Country: IT (occurrence: IT)
  Receive Date: 20200318
  Receipt Date: 20200318
  Transmission Date: 20200409
  Serious: Yes (Other)
  Sender: FDA-Public Use
  Company Number: IT-ALLIED PHARMA-000003

PATIENT
  Age: 63 Year
  Sex: Male

DRUGS (2)
  1. SELEGILINE [Suspect]
     Active Substance: SELEGILINE
     Indication: ALTERED STATE OF CONSCIOUSNESS
     Dosage: 10 MG/DAY FOR 4 WEEKS  VIA PERCUTANEOUS GASTROSTOMY
  2. SELEGILINE [Suspect]
     Active Substance: SELEGILINE
     Indication: ALTERED STATE OF CONSCIOUSNESS
     Dosage: 5 MG/DAY FOR 1 WEEK VIA PERCUTANEOUS GASTROSTOMY

REACTIONS (1)
  - Supraventricular tachycardia [Unknown]
